FAERS Safety Report 9387139 (Version 1)
Quarter: 2013Q3

REPORT INFORMATION
  Report Type: Spontaneous
  Country: NO (occurrence: NO)
  Receive Date: 20130708
  Receipt Date: 20130708
  Transmission Date: 20140515
  Serious: Yes (Other)
  Sender: FDA-Public Use
  Company Number: NO-BAUSCH-BL-2013-003931

PATIENT
  Sex: Female

DRUGS (2)
  1. YELLOX 0.9 MG/ML EYE DROPS, SOLUTION [Suspect]
     Indication: POSTOPERATIVE CARE
     Route: 047
     Dates: start: 201304, end: 201304
  2. YELLOX 0.9 MG/ML EYE DROPS, SOLUTION [Suspect]
     Indication: CATARACT OPERATION

REACTIONS (3)
  - Corneal oedema [Recovered/Resolved]
  - Visual acuity reduced [Recovered/Resolved]
  - Eye irritation [Recovered/Resolved]
